FAERS Safety Report 5307491-2 (Version None)
Quarter: 2007Q2

REPORT INFORMATION
  Report Type: 
  Country: None (occurrence: None)
  Receive Date: 20070425
  Receipt Date: 20070417
  Transmission Date: 20071010
  Serious: Yes (Hospitalization)
  Sender: FDA-Public Use
  Company Number: TOS-000088

PATIENT
  Age: 43 Year
  Sex: Male
  Weight: 87.7 kg

DRUGS (4)
  1. TOSITUMOMAB [Suspect]
     Indication: NON-HODGKIN'S LYMPHOMA
     Route: 042
     Dates: start: 20000913, end: 20000913
  2. IODINE I 131 TOSITUMOMAB [Suspect]
     Indication: NON-HODGKIN'S LYMPHOMA
     Route: 042
     Dates: start: 20000913, end: 20000913
  3. TOSITUMOMAB [Suspect]
     Route: 042
     Dates: start: 20000920, end: 20000920
  4. IODINE I 131 TOSITUMOMAB [Suspect]
     Route: 042
     Dates: start: 20000920, end: 20000920

REACTIONS (2)
  - DIARRHOEA [None]
  - GASTRITIS [None]
